FAERS Safety Report 7919545-2 (Version None)
Quarter: 2011Q4

REPORT INFORMATION
  Report Type: 
  Country: None (occurrence: None)
  Receive Date: 20111116
  Receipt Date: 20111116
  Transmission Date: 20120403
  Serious: Yes (Hospitalization)
  Sender: FDA-Public Use
  Company Number: None

PATIENT
  Age: 58 Year
  Sex: Female
  Weight: 95 kg

DRUGS (17)
  1. MIRAPEX [Concomitant]
  2. ZOFRAN [Concomitant]
  3. PROZAC [Concomitant]
  4. LANTUS [Concomitant]
  5. RISPERDAL [Concomitant]
  6. BENADRYL [Concomitant]
  7. ENALAPRIL MALEATE [Suspect]
     Indication: HYPERTENSION
     Dosage: 20MG BID PO CHRONIC
     Route: 048
  8. KLONOPIN [Concomitant]
  9. GABAPENTIN [Concomitant]
  10. ZOCOR [Concomitant]
  11. ADVAIR DISKUS 100/50 [Concomitant]
  12. LASIX [Concomitant]
  13. OMEPRAZOLE [Concomitant]
  14. NORVASC [Concomitant]
  15. NIFEDIPINE [Concomitant]
  16. LABETALOL HCL [Concomitant]
  17. INDOMETHACIN [Concomitant]

REACTIONS (5)
  - LARYNGEAL OEDEMA [None]
  - DRUG HYPERSENSITIVITY [None]
  - ACUTE RESPIRATORY FAILURE [None]
  - ANGIOEDEMA [None]
  - BLOOD CREATINE PHOSPHOKINASE INCREASED [None]
